FAERS Safety Report 8878792 (Version 4)
Quarter: 2012Q4

REPORT INFORMATION
  Report Type: Report from Study
  Country: BG (occurrence: BG)
  Receive Date: 20121026
  Receipt Date: 20121126
  Transmission Date: 20130627
  Serious: Yes (Hospitalization)
  Sender: FDA-Public Use
  Company Number: BG-ROCHE-1147656

PATIENT
  Age: 56 Year
  Sex: Female
  Weight: 67 kg

DRUGS (8)
  1. PEG-INTERFERON ALFA 2A [Suspect]
     Indication: HEPATITIS C
     Route: 065
     Dates: start: 20121015
  2. PEG-INTERFERON ALFA 2A [Suspect]
     Route: 065
     Dates: start: 201008
  3. RIBAVIRIN [Suspect]
     Indication: HEPATITIS C
     Dosage: 5 tablets per day
     Route: 048
     Dates: start: 20121015, end: 20121018
  4. RIBAVIRIN [Suspect]
     Route: 065
     Dates: start: 201008
  5. BLINDED TMC435 [Suspect]
     Indication: HEPATITIS C
     Route: 048
     Dates: start: 20121015
  6. TELAPREVIR [Suspect]
     Indication: HEPATITIS C
     Route: 048
     Dates: start: 20121015
  7. LOZAP H [Concomitant]
     Dosage: 2 x 1 tablets
     Route: 065
  8. AMLODIPINE [Concomitant]
     Route: 065

REACTIONS (1)
  - Anaemia [Recovered/Resolved]
